FAERS Safety Report 21914243 (Version 1)
Quarter: 2023Q1

REPORT INFORMATION
  Report Type: Other
  Country: CN (occurrence: None)
  Receive Date: 20230126
  Receipt Date: 20230126
  Transmission Date: 20230417
  Serious: Yes (Hospitalization)
  Sender: FDA-Public Use
  Company Number: CN-ROCHE-2361428

PATIENT
  Sex: Male
  Weight: 53 kg

DRUGS (1)
  1. AVASTIN [Suspect]
     Active Substance: BEVACIZUMAB
     Indication: Rectal cancer
     Route: 041
     Dates: start: 20161126, end: 20221206

REACTIONS (4)
  - COVID-19 [Unknown]
  - Proteinuria [Unknown]
  - Cough [Unknown]
  - Asthenia [Unknown]
